FAERS Safety Report 7056900-X (Version None)
Quarter: 2010Q4

REPORT INFORMATION
  Report Type: 
  Country: None (occurrence: None)
  Receive Date: 20101022
  Receipt Date: 20101018
  Transmission Date: 20110411
  Serious: Yes (Death)
  Sender: FDA-Public Use
  Company Number: CH-JNJFOC-20101004343

PATIENT
  Age: 51 Year
  Sex: Female

DRUGS (7)
  1. RISPERDAL [Suspect]
     Indication: DEPRESSION
     Route: 048
  2. RISPERDAL [Suspect]
     Route: 048
  3. REMERON [Suspect]
     Indication: DEPRESSION
     Route: 048
  4. VALVERDE [Concomitant]
     Route: 048
  5. VALVERDE [Concomitant]
     Route: 048
  6. VALVERDE [Concomitant]
     Route: 048
  7. VALVERDE [Concomitant]
     Route: 048

REACTIONS (2)
  - COMPLETED SUICIDE [None]
  - OFF LABEL USE [None]
